FAERS Safety Report 7012230 (Version 4)
Quarter: 2012Q4

REPORT INFORMATION
  Report Type: 
  Country: CA (occurrence: CA)
  Receive Date: 20090605
  Receipt Date: 20121102
  Transmission Date: 20130627
  Serious: Yes (Other)
  Sender: FDA-Public Use
  Company Number: PHHY2008CA20356

PATIENT
  Sex: Female
  Weight: 77.1 kg

DRUGS (2)
  1. SANDOSTATIN LAR [Suspect]
     Indication: ACROMEGALY
     Dosage: 20 mg every 4 weeks
     Route: 030
     Dates: start: 20080729, end: 20091117
  2. ZOLOFT [Concomitant]

REACTIONS (14)
  - Depression [Unknown]
  - Crying [Unknown]
  - Insomnia [Unknown]
  - Fall [Unknown]
  - Stress [Unknown]
  - Mood swings [Unknown]
  - Herpes zoster [Unknown]
  - Cranial nerve disorder [Unknown]
  - Headache [Unknown]
  - Pain [Unknown]
  - Hyperhidrosis [Unknown]
  - Nausea [Unknown]
  - Seasonal allergy [Unknown]
  - Agitation [Unknown]
